FAERS Safety Report 9837828 (Version 1)
Quarter: 2013Q4

REPORT INFORMATION
  Report Type: Spontaneous
  Country: US (occurrence: None)
  Receive Date: 20131205
  Receipt Date: 20131205
  Transmission Date: 20140711
  Serious: No
  Sender: FDA-Public Use
  Company Number: 163-POMAL-13081284

PATIENT
  Age: 80 Year
  Sex: Female
  Weight: 54.43 kg

DRUGS (5)
  1. POMALYST (POMALIDOMIDE) (2 MILLIGRAM, CAPSULES) [Suspect]
     Indication: PLASMA CELL MYELOMA
     Dosage: 2MG, 1 IN 1D, PO
     Route: 048
     Dates: start: 20130722, end: 20130801
  2. ACYCLOVIR (ACICLOVIR) (ACICLOVIR) [Concomitant]
  3. DEXAMETHASONE (DEXAMETHASONE) [Concomitant]
  4. DIFLUCAN (FLUCONAZOLE) [Concomitant]
  5. LORTAB (VICODIN) [Concomitant]

REACTIONS (2)
  - Feeling abnormal [None]
  - Pyrexia [None]
